FAERS Safety Report 6114923-9 (Version None)
Quarter: 2009Q1

REPORT INFORMATION
  Report Type: 
  Country: None (occurrence: None)
  Receive Date: 20090313
  Receipt Date: 20090309
  Transmission Date: 20090719
  Serious: Yes (Death, Hospitalization)
  Sender: FDA-Public Use
  Company Number: PHBS2009US01036

PATIENT
  Age: 54 Year
  Sex: Male

DRUGS (5)
  1. MYCOPHENOLATE MOFETIL [Suspect]
     Indication: RENAL FAILURE
  2. TACROLIMUS [Suspect]
  3. STEROIDS NOS [Suspect]
  4. ACYCLOVIR [Suspect]
  5. TRIMETHOPRIM + SULFAMETHOXAZOLE [Suspect]

REACTIONS (12)
  - ACUTE RESPIRATORY DISTRESS SYNDROME [None]
  - CANDIDIASIS [None]
  - CLOSTRIDIUM DIFFICILE TOXIN TEST POSITIVE [None]
  - DIARRHOEA [None]
  - ENTEROBACTER PNEUMONIA [None]
  - HEPATIC INFECTION BACTERIAL [None]
  - LUNG INFILTRATION [None]
  - MALAISE [None]
  - MULTI-ORGAN FAILURE [None]
  - PNEUMONIA [None]
  - PSEUDOMONAS INFECTION [None]
  - PYREXIA [None]
